FAERS Safety Report 24663772 (Version 2)
Quarter: 2024Q4

REPORT INFORMATION
  Report Type: Report from Study
  Country: PR (occurrence: PR)
  Receive Date: 20241126
  Receipt Date: 20241130
  Transmission Date: 20250115
  Serious: No
  Sender: ABBVIE
  Company Number: PR-ABBVIE-6014256

PATIENT
  Age: 71 Year
  Sex: Female

DRUGS (4)
  1. RINVOQ [Suspect]
     Active Substance: UPADACITINIB
     Indication: Rheumatoid arthritis
     Dosage: LAST ADMIN DATE : 2024
     Route: 048
     Dates: start: 20240606
  2. PROZAC [Concomitant]
     Active Substance: FLUOXETINE HYDROCHLORIDE
     Indication: Product used for unknown indication
     Dosage: 20 MG
     Route: 048
  3. Caltrate, 600 [Concomitant]
     Indication: Product used for unknown indication
     Dosage: (1500)
     Route: 048
  4. AMLODIPINE BESYLATE [Concomitant]
     Active Substance: AMLODIPINE BESYLATE
     Indication: Product used for unknown indication
     Dosage: (5 M)
     Route: 048

REACTIONS (2)
  - Polyp [Recovering/Resolving]
  - Diverticulum [Recovering/Resolving]

NARRATIVE: CASE EVENT DATE: 20240101
